FAERS Safety Report 8168297-2 (Version None)
Quarter: 2012Q1

REPORT INFORMATION
  Report Type: 
  Country: None (occurrence: None)
  Receive Date: 20120227
  Receipt Date: 20120215
  Transmission Date: 20120608
  Serious: Yes (Hospitalization)
  Sender: FDA-Public Use
  Company Number: US-MERCK-1111USA01291

PATIENT
  Age: 54 Year
  Sex: Female
  Weight: 96 kg

DRUGS (10)
  1. FOSAMAX [Suspect]
     Indication: OSTEOPOROSIS
     Route: 048
     Dates: start: 20010505
  2. FOSAMAX [Suspect]
     Route: 048
     Dates: start: 20010501, end: 20071001
  3. VITAMINS (UNSPECIFIED) [Concomitant]
     Route: 065
     Dates: start: 19800101
  4. NASONEX [Concomitant]
     Indication: HYPERSENSITIVITY
     Route: 065
     Dates: start: 20060911
  5. FOSAMAX [Suspect]
     Route: 048
     Dates: start: 20010501, end: 20071001
  6. CALCIUM CARBONATE [Concomitant]
     Route: 065
     Dates: start: 19800101
  7. FOSAMAX [Suspect]
     Indication: OSTEOPENIA
     Route: 048
     Dates: start: 20010505
  8. FOSAMAX [Suspect]
     Route: 048
     Dates: start: 20101101
  9. FOSAMAX [Suspect]
     Route: 048
     Dates: start: 20101101
  10. FOSAMAX [Suspect]
     Route: 048
     Dates: start: 20080210, end: 20110801

REACTIONS (25)
  - DEHYDRATION [None]
  - MUSCULOSKELETAL DISORDER [None]
  - RHINITIS [None]
  - DYSPNOEA EXERTIONAL [None]
  - CAROTID BRUIT [None]
  - DIARRHOEA [None]
  - DEVICE MALFUNCTION [None]
  - NAUSEA [None]
  - PAIN [None]
  - ANXIETY [None]
  - CHILLS [None]
  - LEUKOCYTOSIS [None]
  - ABDOMINAL PAIN UPPER [None]
  - VAGINAL HAEMORRHAGE [None]
  - FOOT FRACTURE [None]
  - BODY TEMPERATURE INCREASED [None]
  - HYPERSENSITIVITY [None]
  - FEMUR FRACTURE [None]
  - ANAEMIA POSTOPERATIVE [None]
  - FALL [None]
  - DRUG HYPERSENSITIVITY [None]
  - GASTROOESOPHAGEAL REFLUX DISEASE [None]
  - COLONIC POLYP [None]
  - INFECTION [None]
  - HYPERTENSION [None]
